FAERS Safety Report 8967853 (Version 1)
Quarter: 2012Q4

REPORT INFORMATION
  Report Type: 
  Country: US (occurrence: US)
  Receive Date: 20121218
  Receipt Date: 20121218
  Transmission Date: 20130627
  Serious: No
  Sender: FDA-Public Use
  Company Number: US-MYLANLABS-2011S1022996

PATIENT
  Age: 43 Year
  Sex: Female
  Weight: 107 kg

DRUGS (1)
  1. ROCURONIUM BROMIDE [Suspect]
     Indication: ANAESTHESIA
     Route: 042
     Dates: start: 20111103, end: 20111103

REACTIONS (2)
  - Drug effect decreased [Recovered/Resolved]
  - Drug effect delayed [Recovered/Resolved]
